FAERS Safety Report 21530335 (Version 1)
Quarter: 2022Q4

REPORT INFORMATION
  Report Type: Spontaneous
  Country: GB (occurrence: GB)
  Receive Date: 20221031
  Receipt Date: 20221031
  Transmission Date: 20230113
  Serious: Yes (Other)
  Sender: FDA-Public Use
  Company Number: None

PATIENT
  Age: 68 Year
  Sex: Male

DRUGS (6)
  1. CARBOPLATIN [Suspect]
     Active Substance: CARBOPLATIN
  2. PEMBROLIZUMAB [Suspect]
     Active Substance: PEMBROLIZUMAB
  3. PEMETREXED [Suspect]
     Active Substance: PEMETREXED
  4. CYCLIZINE [Concomitant]
     Active Substance: CYCLIZINE
     Dosage: 1 EIGHT HOURLY PRN SC/IM
     Dates: start: 20220323
  5. LEVOMEPROMAZINE [Concomitant]
     Active Substance: LEVOMEPROMAZINE
     Dosage: UNK UNK, 1X/DAY
     Dates: start: 20220318
  6. PROCHLORPERAZINE [Concomitant]
     Active Substance: PROCHLORPERAZINE
     Dosage: 5 MG, 3X/DAY
     Dates: start: 20220318

REACTIONS (1)
  - Neutropenic sepsis [Unknown]
